FAERS Safety Report 12762295 (Version 1)
Quarter: 2016Q3

REPORT INFORMATION
  Report Type: Spontaneous
  Country: US (occurrence: US)
  Receive Date: 20160920
  Receipt Date: 20160920
  Transmission Date: 20161109
  Serious: Yes (Life-Threatening, Hospitalization, Other)
  Sender: FDA-Public Use
  Company Number: US-INDIVIOR LIMITED-INDV-094783-2016

PATIENT
  Age: 5 Year
  Sex: Female

DRUGS (1)
  1. SUBOXONE [Suspect]
     Active Substance: BUPRENORPHINE HYDROCHLORIDE\NALOXONE HYDROCHLORIDE
     Dosage: INGESTED 5MG PILL ONCE
     Route: 048

REACTIONS (3)
  - Feeling jittery [Unknown]
  - Unevaluable event [Unknown]
  - Accidental exposure to product by child [Recovered/Resolved]
